FAERS Safety Report 9543349 (Version 2)
Quarter: 2014Q1

REPORT INFORMATION
  Report Type: Spontaneous
  Country: US (occurrence: None)
  Receive Date: 20130524
  Receipt Date: 20130724
  Transmission Date: 20141002
  Serious: Yes (Other)
  Sender: FDA-Public Use
  Company Number: PHEH2013US004077

PATIENT
  Age: 48 Year
  Sex: Female

DRUGS (1)
  1. GILENYA [Suspect]
     Indication: MULTIPLE SCLEROSIS
     Route: 048
     Dates: start: 20111201

REACTIONS (6)
  - Multiple sclerosis relapse [None]
  - Hypoaesthesia [None]
  - Fatigue [None]
  - Depression [None]
  - Emotional disorder [None]
  - Visual impairment [None]
